FAERS Safety Report 11952628 (Version 1)
Quarter: 2016Q1

REPORT INFORMATION
  Report Type: Spontaneous
  Country: US (occurrence: US)
  Receive Date: 20160125
  Receipt Date: 20160125
  Transmission Date: 20160526
  Serious: Yes (Other)
  Sender: FDA-Public Use
  Company Number: US-TARO-2016TAR00045

PATIENT
  Sex: Female

DRUGS (2)
  1. NYSTATIN ORAL SUSPENSION USP 100,000 UNITS/ML [Suspect]
     Active Substance: NYSTATIN
     Indication: ORAL CANDIDIASIS
     Dosage: 5 ML, ONCE OR TWICE
     Route: 048
  2. LEVALBUTEROL INHALER [Concomitant]
     Dosage: UNK

REACTIONS (2)
  - Sensation of foreign body [Recovered/Resolved]
  - Choking sensation [Recovered/Resolved]
